FAERS Safety Report 22075748 (Version 1)
Quarter: 2023Q1

REPORT INFORMATION
  Report Type: Spontaneous
  Country: TW (occurrence: TW)
  Receive Date: 20230308
  Receipt Date: 20230308
  Transmission Date: 20230417
  Serious: Yes (Other)
  Sender: FDA-Public Use
  Company Number: TW-BAUSCHBL-2023BNL001767

PATIENT
  Age: 58 Year
  Sex: Male

DRUGS (18)
  1. PREDNISOLONE [Suspect]
     Active Substance: PREDNISOLONE
     Indication: Hypereosinophilic syndrome
     Route: 065
  2. PREDNISOLONE [Suspect]
     Active Substance: PREDNISOLONE
     Indication: Cutaneous vasculitis
  3. PREDNISOLONE [Suspect]
     Active Substance: PREDNISOLONE
     Indication: Deep vein thrombosis
  4. HEPARIN [Suspect]
     Active Substance: HEPARIN SODIUM
     Indication: Hypereosinophilic syndrome
     Route: 065
  5. HEPARIN [Suspect]
     Active Substance: HEPARIN SODIUM
     Indication: Cutaneous vasculitis
  6. HEPARIN [Suspect]
     Active Substance: HEPARIN SODIUM
     Indication: Deep vein thrombosis
  7. WARFARIN [Suspect]
     Active Substance: WARFARIN
     Indication: Hypereosinophilic syndrome
     Route: 065
  8. WARFARIN [Suspect]
     Active Substance: WARFARIN
     Indication: Cutaneous vasculitis
  9. WARFARIN [Suspect]
     Active Substance: WARFARIN
     Indication: Deep vein thrombosis
  10. HYDROXYUREA [Suspect]
     Active Substance: HYDROXYUREA
     Indication: Hypereosinophilic syndrome
     Route: 065
  11. HYDROXYUREA [Suspect]
     Active Substance: HYDROXYUREA
     Indication: Cutaneous vasculitis
  12. HYDROXYUREA [Suspect]
     Active Substance: HYDROXYUREA
     Indication: Deep vein thrombosis
  13. PENTOXIFYLLINE [Suspect]
     Active Substance: PENTOXIFYLLINE
     Indication: Hypereosinophilic syndrome
     Route: 065
  14. PENTOXIFYLLINE [Suspect]
     Active Substance: PENTOXIFYLLINE
     Indication: Cutaneous vasculitis
  15. PENTOXIFYLLINE [Suspect]
     Active Substance: PENTOXIFYLLINE
     Indication: Deep vein thrombosis
  16. DIPYRIDAMOLE [Suspect]
     Active Substance: DIPYRIDAMOLE
     Indication: Hypereosinophilic syndrome
     Route: 065
  17. DIPYRIDAMOLE [Suspect]
     Active Substance: DIPYRIDAMOLE
     Indication: Cutaneous vasculitis
  18. DIPYRIDAMOLE [Suspect]
     Active Substance: DIPYRIDAMOLE
     Indication: Deep vein thrombosis

REACTIONS (1)
  - Therapy non-responder [Unknown]
